APPROVED DRUG PRODUCT: ZOLMITRIPTAN
Active Ingredient: ZOLMITRIPTAN
Strength: 5MG
Dosage Form/Route: TABLET;ORAL
Application: A207867 | Product #002 | TE Code: AB
Applicant: PLD ACQUISITIONS LLC
Approved: Feb 27, 2017 | RLD: No | RS: No | Type: RX